FAERS Safety Report 7029998-2 (Version None)
Quarter: 2010Q4

REPORT INFORMATION
  Report Type: 
  Country: None (occurrence: None)
  Receive Date: 20101006
  Receipt Date: 20100824
  Transmission Date: 20110411
  Serious: Yes (Hospitalization)
  Sender: FDA-Public Use
  Company Number: PHHO2010RU11775

PATIENT
  Sex: Female
  Weight: 74.7 kg

DRUGS (7)
  1. BLINDED ALISKIREN ALI+TAB+CF [Suspect]
     Dosage: NO TREATMENT
  2. ENALAPRIL MALEATE [Suspect]
     Dosage: NO TREATMENT
  3. BLINDED NO TREATMENT RECEIVED NOMED [Suspect]
     Dosage: NO TREATMENT
  4. COMPARATOR ENALAPRIL [Suspect]
     Indication: CARDIAC FAILURE
     Dosage: UNK
     Route: 048
     Dates: start: 20100701
  5. ALISKIREN [Suspect]
     Indication: CARDIAC FAILURE
     Dosage: UNK
     Route: 048
     Dates: start: 20100728
  6. CARVEDILOL [Concomitant]
     Dosage: UNK
     Dates: start: 20100227
  7. DIUVER [Concomitant]
     Dosage: UNK
     Dates: start: 20091015

REACTIONS (17)
  - ALANINE AMINOTRANSFERASE DECREASED [None]
  - ANEURYSM [None]
  - AORTIC VALVE INCOMPETENCE [None]
  - AORTIC VALVE SCLEROSIS [None]
  - ASTHENIA [None]
  - ATRIAL FIBRILLATION [None]
  - BLOOD CHOLESTEROL INCREASED [None]
  - CALCINOSIS [None]
  - CARDIAC FAILURE CHRONIC [None]
  - CARDIAC FAILURE CONGESTIVE [None]
  - DILATATION VENTRICULAR [None]
  - DISEASE PROGRESSION [None]
  - DYSPNOEA [None]
  - FATIGUE [None]
  - HYPERHIDROSIS [None]
  - LEFT VENTRICULAR HYPERTROPHY [None]
  - MITRAL VALVE INCOMPETENCE [None]
